FAERS Safety Report 9638944 (Version 1)
Quarter: 2013Q4

REPORT INFORMATION
  Report Type: Spontaneous
  Country: FR (occurrence: FR)
  Receive Date: 20131022
  Receipt Date: 20131022
  Transmission Date: 20140711
  Serious: Yes (Other)
  Sender: FDA-Public Use
  Company Number: FR-ABBVIE-13P-056-1160066-00

PATIENT
  Age: 65 Year
  Sex: Male

DRUGS (3)
  1. ZECLAR [Suspect]
     Indication: HELICOBACTER GASTRITIS
     Route: 048
     Dates: start: 20130829, end: 20130830
  2. FLAGYL [Suspect]
     Indication: HELICOBACTER GASTRITIS
     Route: 048
     Dates: start: 20130829, end: 20130830
  3. CLAMOXYL [Suspect]
     Indication: HELICOBACTER GASTRITIS
     Route: 048
     Dates: start: 20130826, end: 20130830

REACTIONS (5)
  - Condition aggravated [Not Recovered/Not Resolved]
  - Vertigo [Not Recovered/Not Resolved]
  - Balance disorder [Not Recovered/Not Resolved]
  - Visual impairment [Unknown]
  - Vestibular disorder [Unknown]
